FAERS Safety Report 20957153 (Version 1)
Quarter: 2022Q2

REPORT INFORMATION
  Report Type: Spontaneous
  Country: US (occurrence: None)
  Receive Date: 20220614
  Receipt Date: 20220614
  Transmission Date: 20220720
  Serious: Yes (Other)
  Sender: FDA-Public Use
  Company Number: None

PATIENT
  Age: 58 Year
  Sex: Female
  Weight: 103.05 kg

DRUGS (15)
  1. CETIRIZINE [Suspect]
     Active Substance: CETIRIZINE HYDROCHLORIDE
     Indication: Rhinitis allergic
     Dosage: OTHER QUANTITY : 1 TABLET(S);?FREQUENCY : AT BEDTIME;?
     Route: 048
     Dates: start: 20120601, end: 20220609
  2. DEVICE [Concomitant]
     Active Substance: DEVICE
  3. MODAFINIL [Concomitant]
     Active Substance: MODAFINIL
  4. BUPROPION [Concomitant]
     Active Substance: BUPROPION
  5. VITAMIN D3 [Concomitant]
     Active Substance: CHOLECALCIFEROL
  6. I METHYLFOLATE [Concomitant]
  7. ENALAPRIL [Concomitant]
     Active Substance: ENALAPRIL
  8. FUROSEMIDE [Concomitant]
     Active Substance: FUROSEMIDE
  9. METFORMIN [Concomitant]
     Active Substance: METFORMIN HYDROCHLORIDE
  10. OZEMPIC [Concomitant]
     Active Substance: SEMAGLUTIDE
  11. THERATEARS [Concomitant]
     Active Substance: CARBOXYMETHYLCELLULOSE SODIUM
  12. CITALOPRAM [Concomitant]
     Active Substance: CITALOPRAM HYDROBROMIDE
  13. PRAMIPEXOLE [Concomitant]
     Active Substance: PRAMIPEXOLE
  14. NEIL MED NASAL RINSE WITH SALINE [Concomitant]
  15. ENHANCE FLONASE SPRAY [Concomitant]

REACTIONS (3)
  - Pruritus [None]
  - Urticaria [None]
  - Scratch [None]

NARRATIVE: CASE EVENT DATE: 20220613
